FAERS Safety Report 25380722 (Version 1)
Quarter: 2025Q2

REPORT INFORMATION
  Report Type: Spontaneous
  Country: DE (occurrence: DE)
  Receive Date: 20250530
  Receipt Date: 20250530
  Transmission Date: 20250716
  Serious: Yes (Other)
  Sender: SANDOZ
  Company Number: DE-PROCTER+GAMBLE-GS18029669

PATIENT
  Age: 33 Year
  Sex: Female

DRUGS (3)
  1. CEFUROXIME [Suspect]
     Active Substance: CEFUROXIME
     Indication: Product used for unknown indication
     Dosage: 1750 MG, QD (1 ONLY)
     Route: 048
     Dates: start: 20080311, end: 20180311
  2. ALCOHOL\DEXTROMETHORPHAN HYDROBROMIDE [Suspect]
     Active Substance: ALCOHOL\DEXTROMETHORPHAN HYDROBROMIDE
     Indication: Product used for unknown indication
     Dosage: 160 MG, QD (1 ONLY)
     Route: 048
     Dates: start: 20180311, end: 20180311
  3. ACETAMINOPHEN [Suspect]
     Active Substance: ACETAMINOPHEN
     Indication: Product used for unknown indication
     Dosage: 3500 MG, QD (1 ONLY)
     Route: 048
     Dates: start: 20180311, end: 20180311

REACTIONS (2)
  - Suicide attempt [Unknown]
  - Intentional overdose [Unknown]
